FAERS Safety Report 25079329 (Version 1)
Quarter: 2025Q1

REPORT INFORMATION
  Report Type: Spontaneous
  Country: US (occurrence: US)
  Receive Date: 20250314
  Receipt Date: 20250314
  Transmission Date: 20250409
  Serious: Yes (Other)
  Sender: COOPERSURGICAL
  Company Number: US-COOPERSURGICAL, INC.-2025CPS001934

PATIENT
  Sex: Female
  Weight: 140.14 kg

DRUGS (3)
  1. PARAGARD T 380A [Suspect]
     Active Substance: COPPER
     Indication: Contraception
     Route: 015
     Dates: start: 2009
  2. KLONOPIN [Concomitant]
     Active Substance: CLONAZEPAM
     Dates: start: 1993
  3. XANAX [Concomitant]
     Active Substance: ALPRAZOLAM
     Dates: start: 1993

REACTIONS (8)
  - Reproductive complication associated with device [Not Recovered/Not Resolved]
  - High risk pregnancy [Recovered/Resolved]
  - Device breakage [Recovered/Resolved]
  - Pregnancy with contraceptive device [Recovered/Resolved]
  - Drug ineffective [Unknown]
  - Emotional distress [Unknown]
  - Abnormal uterine bleeding [Recovered/Resolved]
  - Device expulsion [Recovered/Resolved]

NARRATIVE: CASE EVENT DATE: 20130101
